FAERS Safety Report 18199789 (Version 1)
Quarter: 2020Q3

REPORT INFORMATION
  Report Type: Spontaneous
  Country: FR (occurrence: FR)
  Receive Date: 20200827
  Receipt Date: 20200827
  Transmission Date: 20201103
  Serious: Yes (Other)
  Sender: FDA-Public Use
  Company Number: FR-LUNDBECK-DKLU3020126

PATIENT
  Age: 20 Year
  Sex: Female

DRUGS (1)
  1. URBANYL [Suspect]
     Active Substance: CLOBAZAM
     Indication: TONIC CONVULSION
     Route: 048
     Dates: start: 20200715, end: 20200717

REACTIONS (1)
  - Rash maculo-papular [Not Recovered/Not Resolved]
